FAERS Safety Report 18452366 (Version 1)
Quarter: 2020Q4

REPORT INFORMATION
  Report Type: Report from Study
  Country: None (occurrence: US)
  Receive Date: 20201102
  Receipt Date: 20201102
  Transmission Date: 20210114
  Serious: No
  Sender: FDA-Public Use
  Company Number: US-BIOVITRUM-2020US5895

PATIENT
  Age: 8 Year
  Sex: Male

DRUGS (1)
  1. KINERET [Suspect]
     Active Substance: ANAKINRA
     Indication: EPILEPSY
     Dosage: 200 MILLIGRAM IN THE AM AND 100 MILLIGRAM IN THE PM
     Route: 058
     Dates: start: 20180725

REACTIONS (2)
  - Anxiety [Unknown]
  - Off label use [Unknown]

NARRATIVE: CASE EVENT DATE: 20180725
